FAERS Safety Report 21666498 (Version 1)
Quarter: 2022Q4

REPORT INFORMATION
  Report Type: Spontaneous
  Country: US (occurrence: US)
  Receive Date: 20221201
  Receipt Date: 20221201
  Transmission Date: 20230113
  Serious: No
  Sender: FDA-Public Use
  Company Number: US-BRISTOL-MYERS SQUIBB COMPANY-2022-146062

PATIENT
  Age: 58 Year
  Sex: Male

DRUGS (1)
  1. REVLIMID [Suspect]
     Active Substance: LENALIDOMIDE
     Indication: Myelodysplastic syndrome
     Dosage: FREQ: ONCE DAILY FOR 21 DAYS
     Route: 048
     Dates: start: 20220906

REACTIONS (2)
  - Rash pruritic [Unknown]
  - Off label use [Unknown]

NARRATIVE: CASE EVENT DATE: 20221122
